FAERS Safety Report 8467803-8 (Version None)
Quarter: 2012Q2

REPORT INFORMATION
  Report Type: 
  Country: None (occurrence: None)
  Receive Date: 20120626
  Receipt Date: 20120613
  Transmission Date: 20120825
  Serious: No
  Sender: FDA-Public Use
  Company Number: US-ASTRAZENECA-2012SE39613

PATIENT
  Sex: Female

DRUGS (2)
  1. NEXIUM [Suspect]
     Route: 048
  2. NEXIUM [Suspect]
     Dosage: BID
     Route: 048

REACTIONS (3)
  - INTENTIONAL DRUG MISUSE [None]
  - BONE DISORDER [None]
  - BARRETT'S OESOPHAGUS [None]
